FAERS Safety Report 8169415-2 (Version None)
Quarter: 2012Q1

REPORT INFORMATION
  Report Type: 
  Country: None (occurrence: None)
  Receive Date: 20120222
  Receipt Date: 20120215
  Transmission Date: 20120608
  Serious: Yes (Other)
  Sender: FDA-Public Use
  Company Number: 2012041655

PATIENT
  Age: 87 Year
  Sex: Female

DRUGS (1)
  1. FRAGMIN [Suspect]
     Indication: OMENTECTOMY

REACTIONS (2)
  - RENAL IMPAIRMENT [None]
  - BLOOD POTASSIUM INCREASED [None]
